FAERS Safety Report 10229214 (Version 2)
Quarter: 2014Q3

REPORT INFORMATION
  Report Type: Spontaneous
  Country: TW (occurrence: TW)
  Receive Date: 20140611
  Receipt Date: 20140707
  Transmission Date: 20150326
  Serious: Yes (Hospitalization)
  Sender: FDA-Public Use
  Company Number: TW-AMGEN INC.-TWNSP2014042639

PATIENT
  Age: 59 Year
  Sex: Female

DRUGS (1)
  1. ENBREL [Suspect]
     Active Substance: ETANERCEPT
     Indication: RHEUMATOID ARTHRITIS
     Dosage: 25 MG, WEEKLY
     Route: 058
     Dates: start: 20090821

REACTIONS (4)
  - Hyperosmolar state [Recovering/Resolving]
  - Hyperglycaemia [Recovering/Resolving]
  - Urinary tract infection [Recovering/Resolving]
  - Acute coronary syndrome [Recovering/Resolving]
